FAERS Safety Report 9861814 (Version 1)
Quarter: 2014Q1

REPORT INFORMATION
  Report Type: Spontaneous
  Country: AU (occurrence: AU)
  Receive Date: 20140203
  Receipt Date: 20140203
  Transmission Date: 20141002
  Serious: Yes (Other)
  Sender: FDA-Public Use
  Company Number: AU-BAYER-2014-012699

PATIENT
  Sex: Female

DRUGS (1)
  1. YASMIN [Suspect]
     Dosage: UNK
     Route: 048
     Dates: start: 2010

REACTIONS (9)
  - VIIth nerve paralysis [None]
  - Migraine [None]
  - Hypoaesthesia [None]
  - Pain in extremity [None]
  - Dyspnoea [None]
  - Dizziness [None]
  - Palpitations [None]
  - Hypertension [None]
  - Anxiety [None]
